FAERS Safety Report 21457608 (Version 1)
Quarter: 2022Q4

REPORT INFORMATION
  Report Type: Other
  Country: IE (occurrence: IE)
  Receive Date: 20221014
  Receipt Date: 20221014
  Transmission Date: 20230113
  Serious: No
  Sender: FDA-Public Use
  Company Number: IE-SA-SAC20220209000725

PATIENT
  Age: 49 Year
  Sex: Female

DRUGS (7)
  1. OCRELIZUMAB [Suspect]
     Active Substance: OCRELIZUMAB
     Indication: Product used for unknown indication
     Dosage: UNK
     Route: 065
     Dates: start: 202208
  2. ALEMTUZUMAB [Suspect]
     Active Substance: ALEMTUZUMAB
     Indication: Relapsing-remitting multiple sclerosis
     Dosage: UNK
     Route: 065
  3. FLAX OIL [Concomitant]
     Dosage: 2 ML, PRN
  4. HERBALS\TURMERIC [Concomitant]
     Active Substance: HERBALS\TURMERIC
     Dosage: 1 N/A, QD
  5. MIRABEGRON [Concomitant]
     Active Substance: MIRABEGRON
     Dosage: 50 MG, QD
  6. CHOLECALCIFEROL [Concomitant]
     Active Substance: CHOLECALCIFEROL
     Dosage: 1600 UG, QD
  7. FISH OIL [Concomitant]
     Active Substance: FISH OIL
     Dosage: 1 N/A, QD

REACTIONS (3)
  - Bladder disorder [Recovered/Resolved]
  - Muscular weakness [Recovered/Resolved]
  - Herpes zoster [Not Recovered/Not Resolved]
